FAERS Safety Report 8296178-2 (Version None)
Quarter: 2012Q2

REPORT INFORMATION
  Report Type: 
  Country: None (occurrence: None)
  Receive Date: 20120418
  Receipt Date: 20120410
  Transmission Date: 20120825
  Serious: Yes (Hospitalization, Other)
  Sender: FDA-Public Use
  Company Number: BR-ABBOTT-12P-020-0921762-00

PATIENT
  Sex: Female
  Weight: 90 kg

DRUGS (1)
  1. DEPAKENE [Suspect]
     Indication: PSYCHIATRIC SYMPTOM
     Route: 048

REACTIONS (8)
  - PSYCHIATRIC SYMPTOM [None]
  - DEPRESSED MOOD [None]
  - DRUG INTOLERANCE [None]
  - EUPHORIC MOOD [None]
  - CRYING [None]
  - DRUG DOSE OMISSION [None]
  - DEPRESSION [None]
  - MENTAL DISORDER [None]
